FAERS Safety Report 8153053-1 (Version None)
Quarter: 2012Q1

REPORT INFORMATION
  Report Type: 
  Country: None (occurrence: None)
  Receive Date: 20120221
  Receipt Date: 20120215
  Transmission Date: 20120608
  Serious: Yes (Other)
  Sender: FDA-Public Use
  Company Number: JP-PFIZER INC-2012041164

PATIENT
  Sex: Female

DRUGS (4)
  1. TRIAZOLAM [Suspect]
  2. BROMVALERYLUREA [Suspect]
  3. SULPIRIDE [Suspect]
  4. OLANZAPINE [Suspect]

REACTIONS (4)
  - RESPIRATORY ARREST [None]
  - SUICIDE ATTEMPT [None]
  - OBSTRUCTIVE AIRWAYS DISORDER [None]
  - INTENTIONAL OVERDOSE [None]
